FAERS Safety Report 5397109-5 (Version None)
Quarter: 2007Q3

REPORT INFORMATION
  Report Type: 
  Country: None (occurrence: None)
  Receive Date: 20070725
  Receipt Date: 20070712
  Transmission Date: 20080115
  Serious: Yes (Other)
  Sender: FDA-Public Use
  Company Number: US-PFIZER INC-2007058213

PATIENT
  Sex: Male
  Weight: 95.3 kg

DRUGS (2)
  1. CELEBREX [Suspect]
     Indication: ARTHRITIS
  2. CELEBREX [Suspect]
     Indication: SWELLING

REACTIONS (4)
  - ANGINA PECTORIS [None]
  - BUNDLE BRANCH BLOCK RIGHT [None]
  - PULMONARY HYPERTENSION [None]
  - RIGHT VENTRICULAR HYPERTROPHY [None]
